FAERS Safety Report 5372381-6 (Version None)
Quarter: 2007Q2

REPORT INFORMATION
  Report Type: 
  Country: None (occurrence: None)
  Receive Date: 20070627
  Receipt Date: 20070313
  Transmission Date: 20071010
  Serious: No
  Sender: FDA-Public Use
  Company Number: US-BRISTOL-MYERS SQUIBB COMPANY-13712328

PATIENT
  Age: 54 Year
  Sex: Male
  Weight: 82 kg

DRUGS (8)
  1. SPRYCEL [Suspect]
     Indication: LEUKAEMIA
     Dates: start: 20070308
  2. SINGULAIR [Concomitant]
  3. GLIPIZIDE [Concomitant]
  4. METFORMIN HCL [Concomitant]
  5. UROXATRAL [Concomitant]
  6. GABAPENTIN [Concomitant]
  7. ALLOPURINOL [Concomitant]
  8. ENALAPRIL [Concomitant]

REACTIONS (5)
  - ABNORMAL DREAMS [None]
  - CONFUSIONAL STATE [None]
  - HALLUCINATION [None]
  - INCREASED APPETITE [None]
  - SOMNOLENCE [None]
